FAERS Safety Report 9587428 (Version 3)
Quarter: 2013Q4

REPORT INFORMATION
  Report Type: Report from Study
  Country: BR (occurrence: BR)
  Receive Date: 20131003
  Receipt Date: 20131011
  Transmission Date: 20140711
  Serious: Yes (Hospitalization, Other)
  Sender: FDA-Public Use
  Company Number: PHHY2013BR108370

PATIENT
  Age: 59 Year
  Sex: Female

DRUGS (3)
  1. FORASEQ [Suspect]
     Indication: ASTHMA
     Dosage: 1 DF, QD
  2. FORASEQ [Suspect]
     Dosage: 1 DF, QID
  3. FORASEQ [Suspect]
     Dosage: 2 DF, Q12H

REACTIONS (6)
  - Asthmatic crisis [Recovering/Resolving]
  - Dyspnoea [Unknown]
  - Influenza [Recovering/Resolving]
  - Back pain [Unknown]
  - Irritability [Unknown]
  - Incorrect dose administered [Unknown]
